FAERS Safety Report 6551866-0 (Version None)
Quarter: 2010Q1

REPORT INFORMATION
  Report Type: 
  Country: None (occurrence: None)
  Receive Date: 20100126
  Receipt Date: 20091023
  Transmission Date: 20100710
  Serious: Yes (Other)
  Sender: FDA-Public Use
  Company Number: JP-SANOFI-AVENTIS-200912652JP

PATIENT

DRUGS (2)
  1. OPTICLICK [Suspect]
  2. LANTUS [Suspect]

REACTIONS (2)
  - DEVICE MALFUNCTION [None]
  - NO ADVERSE EVENT [None]
